FAERS Safety Report 5424734-5 (Version None)
Quarter: 2007Q3

REPORT INFORMATION
  Report Type: 
  Country: None (occurrence: None)
  Receive Date: 20070725
  Receipt Date: 20060705
  Transmission Date: 20080115
  Serious: Yes (Hospitalization)
  Sender: FDA-Public Use
  Company Number: US-JNJFOC-20060701019

PATIENT
  Age: 65 Year
  Sex: Male

DRUGS (13)
  1. IMODIUM A-D [Suspect]
     Indication: DIARRHOEA
     Dosage: 2 MG, 3 IN 45 MINUTE, ORAL
     Route: 048
     Dates: start: 20060702, end: 20060702
  2. OXYCONTIN [Concomitant]
  3. TARCEVA (ANTINEOPLASTIC AGENTS) [Concomitant]
  4. ACTOS [Concomitant]
  5. COREG [Concomitant]
  6. COUMADIN [Concomitant]
  7. FLOMAX [Concomitant]
  8. LANOXIN [Concomitant]
  9. GLUCOVANCE [Concomitant]
  10. ZOCOR [Concomitant]
  11. MAGNESIUM OXIDE (MAGNESIUM OXIDE) [Concomitant]
  12. SENEKOT (SENNA FRUIT) [Concomitant]
  13. CHEMOTHERAPY (ANTINEOPLASTIC AGENTS) [Concomitant]

REACTIONS (1)
  - ABDOMINAL PAIN [None]
